FAERS Safety Report 5331474-X (Version None)
Quarter: 2007Q2

REPORT INFORMATION
  Report Type: 
  Country: None (occurrence: None)
  Receive Date: 20070522
  Receipt Date: 20070511
  Transmission Date: 20071010
  Serious: Yes (Other)
  Sender: FDA-Public Use
  Company Number: FR-PFIZER INC-2007038754

PATIENT
  Sex: Male

DRUGS (2)
  1. XALATAN [Suspect]
  2. ALL OTHER THERAPEUTIC PRODUCTS [Concomitant]

REACTIONS (2)
  - INTENTIONAL DRUG MISUSE [None]
  - INTRAOCULAR PRESSURE INCREASED [None]
